FAERS Safety Report 10229442 (Version 1)
Quarter: 2014Q2

REPORT INFORMATION
  Report Type: Spontaneous
  Country: US (occurrence: None)
  Receive Date: 20140521
  Receipt Date: 20140521
  Transmission Date: 20141212
  Serious: Yes (Other)
  Sender: FDA-Public Use
  Company Number: 1351490

PATIENT
  Age: 49 Year
  Sex: Female

DRUGS (2)
  1. ACTEMRA [Suspect]
     Indication: RHEUMATOID ARTHRITIS
     Dosage: BI-WEEKLY
     Route: 058
  2. ACTEMRA [Suspect]
     Indication: RHEUMATOID ARTHRITIS
     Dosage: BI-WEEKLY
     Route: 030
     Dates: start: 20131122

REACTIONS (3)
  - Hypersensitivity [None]
  - Urticaria [None]
  - Rash [None]
